FAERS Safety Report 5922348-1 (Version None)
Quarter: 2008Q4

REPORT INFORMATION
  Report Type: 
  Country: None (occurrence: None)
  Receive Date: 20081017
  Receipt Date: 20081009
  Transmission Date: 20090506
  Serious: Yes (Hospitalization)
  Sender: FDA-Public Use
  Company Number: KR-BRISTOL-MYERS SQUIBB COMPANY-14371785

PATIENT
  Age: 45 Year
  Sex: Male
  Weight: 75 kg

DRUGS (19)
  1. CETUXIMAB [Suspect]
     Indication: GASTROOESOPHAGEAL CANCER
     Dosage: IV INFUSION 5MG/ML
     Route: 042
     Dates: start: 20081001, end: 20081001
  2. CISPLATIN [Suspect]
     Indication: GASTROOESOPHAGEAL CANCER
     Route: 042
     Dates: start: 20081001, end: 20081001
  3. CAPECITABINE [Suspect]
     Indication: GASTROOESOPHAGEAL CANCER
     Route: 048
     Dates: start: 20081001, end: 20081001
  4. OXYCODONE HCL [Concomitant]
     Dosage: TAKEN 30MG AND 10MG FROM 01-OCT-2008 TO 02-OCT-2008. TAKEN 40MG ON 02-OCT-2008.
     Dates: start: 20080930, end: 20081001
  5. MORPHINE SULFATE [Concomitant]
     Dates: start: 20080930, end: 20081001
  6. DOLASETRON MESILATE [Concomitant]
     Indication: PROPHYLAXIS
     Dates: start: 20081001, end: 20081001
  7. FUROSEMIDE [Concomitant]
     Indication: PROPHYLAXIS
     Dates: start: 20081001, end: 20081001
  8. SODIUM CHLORIDE INJ [Concomitant]
     Indication: PROPHYLAXIS
     Dosage: ALSO RECEIVED 500CC AND 1000CC ON 01-OCT-2008.
     Dates: start: 20081001, end: 20081001
  9. DEXAMETHASONE [Concomitant]
     Indication: PROPHYLAXIS
     Dates: start: 20081001, end: 20081001
  10. ATIVAN [Concomitant]
     Indication: PROPHYLAXIS
     Dates: start: 20081001, end: 20081001
  11. APREPITANT [Concomitant]
     Indication: PROPHYLAXIS
     Dosage: ALSO TOOK 80MG FROM 01-OCT-2008 TO 03-OCT-2008.
     Dates: start: 20081001, end: 20081003
  12. PHENIRAMINE [Concomitant]
     Indication: PROPHYLAXIS
     Dates: start: 20081001, end: 20081001
  13. PYRIDOXINE HCL [Concomitant]
     Indication: PROPHYLAXIS
     Dates: start: 20081001, end: 20081002
  14. LANSOPRAZOLE [Concomitant]
     Dates: start: 20081002
  15. LEVOSULPIRIDE [Concomitant]
     Dates: start: 20081002
  16. SUCRALFATE [Concomitant]
     Dates: start: 20081002
  17. PANCREATIN TRIPLE STRENGTH CAP [Concomitant]
     Dates: start: 20081002
  18. LACTITOL [Concomitant]
     Dates: start: 20081002
  19. ETIZOLAM [Concomitant]
     Dates: start: 20081002

REACTIONS (1)
  - ABDOMINAL DISTENSION [None]
